FAERS Safety Report 4639989-4 (Version None)
Quarter: 2005Q2

REPORT INFORMATION
  Report Type: 
  Country: None (occurrence: None)
  Receive Date: 20050420
  Receipt Date: 20050407
  Transmission Date: 20051028
  Serious: Yes (Other)
  Sender: FDA-Public Use
  Company Number: 200512868US

PATIENT
  Sex: Female

DRUGS (1)
  1. KETEK [Suspect]
     Indication: SINUSITIS
     Route: 048
     Dates: start: 20050309, end: 20050309

REACTIONS (7)
  - DIZZINESS [None]
  - HEADACHE [None]
  - HEPATIC ENZYME INCREASED [None]
  - HYPERTENSION [None]
  - MALAISE [None]
  - TUNNEL VISION [None]
  - VISION BLURRED [None]
